FAERS Safety Report 9227993 (Version 1)
Quarter: 2013Q2

REPORT INFORMATION
  Report Type: Spontaneous
  Country: US (occurrence: None)
  Receive Date: 20130411
  Receipt Date: 20130411
  Transmission Date: 20140414
  Serious: Yes (Other)
  Sender: FDA-Public Use
  Company Number: None

PATIENT
  Sex: 0

DRUGS (2)
  1. LEVOTHYROXINE [Suspect]
     Dates: start: 201211, end: 201303
  2. LEVOTHYROXINE [Suspect]
     Dates: start: 201211, end: 201303

REACTIONS (1)
  - Drug level above therapeutic [None]
